FAERS Safety Report 6277807 (Version 5)
Quarter: 2015Q2

REPORT INFORMATION
  Report Type: Spontaneous
  Country: ES (occurrence: ES)
  Receive Date: 20060320
  Receipt Date: 20150625
  Transmission Date: 20150821
  Serious: Yes (Hospitalization, Disabling, Other)
  Sender: FDA-Public Use
  Company Number: ES-PFIZER INC-2006034075

PATIENT
  Age: 62 Year
  Sex: Female

DRUGS (6)
  1. XICIL [Concomitant]
     Indication: OSTEOARTHRITIS
     Dates: start: 200404
  2. OMEPRAZOLE. [Concomitant]
     Active Substance: OMEPRAZOLE
  3. FELDENE [Suspect]
     Active Substance: PIROXICAM
     Indication: OSTEOARTHRITIS
  4. PARACETAMOL [Concomitant]
     Active Substance: ACETAMINOPHEN
     Dates: start: 200404
  5. FELDENE [Suspect]
     Active Substance: PIROXICAM
     Indication: ARTHRALGIA
     Route: 048
     Dates: start: 20050619, end: 20050624
  6. FELDENE [Suspect]
     Active Substance: PIROXICAM
     Indication: INFLAMMATION

REACTIONS (7)
  - Blindness [Not Recovered/Not Resolved]
  - Deafness [Not Recovered/Not Resolved]
  - Tracheal ulcer [Unknown]
  - Diarrhoea [Unknown]
  - Gastrointestinal disorder [Unknown]
  - Toxic epidermal necrolysis [Not Recovered/Not Resolved]
  - Oesophageal disorder [Unknown]

NARRATIVE: CASE EVENT DATE: 2005
